FAERS Safety Report 8774217 (Version 2)
Quarter: 2012Q4

REPORT INFORMATION
  Report Type: 
  Country: JP (occurrence: JP)
  Receive Date: 20120907
  Receipt Date: 20121109
  Transmission Date: 20130627
  Serious: Yes (Hospitalization)
  Sender: FDA-Public Use
  Company Number: JP-AMGEN-JPNSP2012056238

PATIENT
  Age: 65 Year
  Sex: Female

DRUGS (7)
  1. ARANESP [Suspect]
     Indication: NEPHROGENIC ANAEMIA
     Route: 030
     Dates: start: 20120723, end: 20120824
  2. URSO [Concomitant]
     Indication: HEPATITIS B
     Route: 048
     Dates: start: 20041203
  3. MARZULENE-S [Concomitant]
     Indication: GASTRITIS
     Route: 048
     Dates: start: 20041203
  4. LIVALO [Concomitant]
     Indication: DYSLIPIDAEMIA
     Route: 048
     Dates: start: 20080617
  5. METHYCOBAL [Concomitant]
     Indication: HYPOVITAMINOSIS
     Route: 048
     Dates: start: 20080908
  6. EVISTA [Concomitant]
     Indication: OSTEOPOROSIS
     Route: 048
     Dates: start: 20100730
  7. ARGAMATE [Concomitant]
     Indication: HYPERKALAEMIA
     Route: 048
     Dates: start: 20120723, end: 201208

REACTIONS (4)
  - Pyrexia [Unknown]
  - Blood lactate dehydrogenase increased [Unknown]
  - Hypertension [Recovered/Resolved]
  - Oedema [Unknown]
